FAERS Safety Report 9324292 (Version 2)
Quarter: 2013Q3

REPORT INFORMATION
  Report Type: Report from Study
  Country: JP (occurrence: JP)
  Receive Date: 20130603
  Receipt Date: 20130725
  Transmission Date: 20140515
  Serious: Yes (Other)
  Sender: FDA-Public Use
  Company Number: PHHY2013JP055449

PATIENT
  Age: 71 Year
  Sex: Male

DRUGS (4)
  1. AMN107 [Suspect]
     Indication: CHRONIC MYELOID LEUKAEMIA
     Dosage: 300 MG, DAILY
     Route: 048
     Dates: start: 20110325, end: 20110608
  2. AMN107 [Suspect]
     Dosage: 150 MG, DAILY
     Route: 048
     Dates: start: 20110609, end: 20110707
  3. URSO [Concomitant]
     Route: 048
  4. SEROQUEL [Concomitant]
     Dosage: 200 MG
     Route: 048

REACTIONS (2)
  - Blood bilirubin increased [Recovered/Resolved]
  - Electrocardiogram QT prolonged [Recovered/Resolved]
